FAERS Safety Report 19543574 (Version 1)
Quarter: 2021Q3

REPORT INFORMATION
  Report Type: Spontaneous
  Country: GB (occurrence: GB)
  Receive Date: 20210714
  Receipt Date: 20210714
  Transmission Date: 20211014
  Serious: Yes (Other)
  Sender: FDA-Public Use
  Company Number: GB-AUROBINDO-AUR-APL-2021-029501

PATIENT
  Age: 57 Year
  Sex: Female

DRUGS (2)
  1. BENEPALI [Suspect]
     Active Substance: ETANERCEPT
     Indication: RHEUMATOID ARTHRITIS
     Dosage: 50 MILLIGRAM, EVERY WEEK
     Route: 058
  2. NAPROXEN. [Suspect]
     Active Substance: NAPROXEN
     Indication: PRODUCT USED FOR UNKNOWN INDICATION
     Dosage: UNK
     Route: 065

REACTIONS (15)
  - Poor quality sleep [Unknown]
  - Weight increased [Unknown]
  - Therapeutic product effect incomplete [Unknown]
  - Pleuritic pain [Unknown]
  - Ill-defined disorder [Unknown]
  - Renal impairment [Unknown]
  - Fatigue [Unknown]
  - Joint dislocation [Unknown]
  - Intervertebral disc degeneration [Unknown]
  - Prolapse [Unknown]
  - Frustration tolerance decreased [Unknown]
  - Back pain [Unknown]
  - Walking aid user [Unknown]
  - Renal cancer [Unknown]
  - Metastasis [Unknown]
